FAERS Safety Report 16964992 (Version 21)
Quarter: 2022Q3

REPORT INFORMATION
  Report Type: Spontaneous
  Country: BR (occurrence: BR)
  Receive Date: 20191028
  Receipt Date: 20220920
  Transmission Date: 20221026
  Serious: Yes (Other)
  Sender: FDA-Public Use
  Company Number: BR-GLAXOSMITHKLINE-BR2015GSK062465

PATIENT

DRUGS (3)
  1. BENLYSTA [Suspect]
     Active Substance: BELIMUMAB
     Indication: Systemic lupus erythematosus
     Dosage: UNK
     Dates: start: 20140923
  2. BENLYSTA [Suspect]
     Active Substance: BELIMUMAB
     Dosage: 600 MG
     Dates: start: 20150309
  3. CHLOROQUINE [Concomitant]
     Active Substance: CHLOROQUINE
     Indication: Product used for unknown indication
     Dosage: UNK

REACTIONS (40)
  - Hypothermia [Recovered/Resolved]
  - Systemic lupus erythematosus [Unknown]
  - Nausea [Recovered/Resolved]
  - Arthralgia [Recovered/Resolved]
  - Influenza [Recovered/Resolved]
  - Oropharyngeal pain [Recovered/Resolved]
  - Diarrhoea [Not Recovered/Not Resolved]
  - Pyrexia [Recovered/Resolved]
  - Localised oedema [Recovered/Resolved]
  - Inflammation [Recovered/Resolved]
  - Pain [Not Recovered/Not Resolved]
  - Neck mass [Recovered/Resolved]
  - Malaise [Recovered/Resolved]
  - Chills [Recovered/Resolved]
  - Decreased immune responsiveness [Recovered/Resolved]
  - Oral herpes [Recovered/Resolved]
  - Fibromyalgia [Not Recovered/Not Resolved]
  - Rash macular [Recovered/Resolved]
  - Anxiety [Recovered/Resolved]
  - Weight decreased [Recovered/Resolved]
  - Flatulence [Recovered/Resolved]
  - Abdominal distension [Recovered/Resolved]
  - Arthritis [Recovered/Resolved]
  - Swelling [Recovered/Resolved]
  - Abdominal pain [Unknown]
  - Anaemia [Unknown]
  - Heavy menstrual bleeding [Unknown]
  - Hysterectomy [Unknown]
  - Uterine disorder [Unknown]
  - Procedural pain [Unknown]
  - Adenomyosis [Recovered/Resolved]
  - Tumour marker increased [Unknown]
  - Hypersensitivity [Unknown]
  - Drug ineffective [Unknown]
  - Inappropriate schedule of product administration [Unknown]
  - Underdose [Unknown]
  - Product availability issue [Unknown]
  - Circumstance or information capable of leading to medication error [Unknown]
  - Product dose omission issue [Unknown]
  - Product complaint [Unknown]

NARRATIVE: CASE EVENT DATE: 20160604
